FAERS Safety Report 8804014 (Version 5)
Quarter: 2013Q3

REPORT INFORMATION
  Report Type: Spontaneous
  Country: US (occurrence: US)
  Receive Date: 20120924
  Receipt Date: 20130809
  Transmission Date: 20140515
  Serious: Yes (Hospitalization, Disabling, Other)
  Sender: FDA-Public Use
  Company Number: US-JNJFOC-20120905221

PATIENT
  Sex: Female
  Weight: 81.65 kg

DRUGS (1)
  1. ORTHO-NOVUM 7/7/7 [Suspect]
     Indication: CONTRACEPTION
     Route: 048
     Dates: start: 1985, end: 200505

REACTIONS (7)
  - Cerebral infarction [Unknown]
  - Cerebrovascular accident [Recovering/Resolving]
  - Uterine leiomyoma [Recovered/Resolved]
  - Thrombosis [Recovered/Resolved]
  - Local swelling [Recovered/Resolved]
  - Injury [Unknown]
  - Weight decreased [Not Recovered/Not Resolved]
